FAERS Safety Report 12718665 (Version 3)
Quarter: 2021Q3

REPORT INFORMATION
  Report Type: Report from Study
  Country: None (occurrence: CA)
  Receive Date: 20160906
  Receipt Date: 20210930
  Transmission Date: 20211014
  Serious: Yes (Hospitalization, Other)
  Sender: FDA-Public Use
  Company Number: CA-ABBVIE-16P-028-1719528-00

PATIENT
  Age: 67 Year
  Sex: Male

DRUGS (1)
  1. LUPRON DEPOT [Suspect]
     Active Substance: LEUPROLIDE ACETATE
     Indication: PRODUCT USED FOR UNKNOWN INDICATION
     Route: 050
     Dates: start: 20151203

REACTIONS (8)
  - Atrial fibrillation [Unknown]
  - Arthritis bacterial [Unknown]
  - Encephalopathy [Unknown]
  - Neck pain [Recovering/Resolving]
  - Swelling [Recovering/Resolving]
  - Salivary gland calculus removal [Recovering/Resolving]
  - Alcohol poisoning [Recovered/Resolved]
  - Small intestinal obstruction [Recovered/Resolved]

NARRATIVE: CASE EVENT DATE: 2016
